FAERS Safety Report 24747397 (Version 1)
Quarter: 2024Q4

REPORT INFORMATION
  Report Type: Spontaneous
  Country: US (occurrence: US)
  Receive Date: 20241218
  Receipt Date: 20241218
  Transmission Date: 20250115
  Serious: Yes (Hospitalization, Other)
  Sender: STRIDES
  Company Number: US-STRIDES PHARMA UK LTD.-2024SP011679

PATIENT

DRUGS (13)
  1. PREDNISOLONE [Suspect]
     Active Substance: PREDNISOLONE
     Indication: Necrotising scleritis
     Dosage: 1 MILLIGRAM/KILOGRAM (TAPERED OVER 3 MONTHS)
     Route: 065
  2. PREDNISOLONE [Suspect]
     Active Substance: PREDNISOLONE
     Dosage: UNK, QD (MAINTENANCE DOSE)
     Route: 065
  3. METHOTREXATE [Suspect]
     Active Substance: METHOTREXATE
     Indication: Necrotising scleritis
     Dosage: 25 MILLIGRAM PER WEEK
     Route: 065
  4. MYCOPHENOLATE MOFETIL [Suspect]
     Active Substance: MYCOPHENOLATE MOFETIL
     Indication: Necrotising scleritis
     Dosage: UNK
     Route: 065
  5. INFLIXIMAB [Suspect]
     Active Substance: INFLIXIMAB
     Indication: Necrotising scleritis
     Dosage: 5 MILLIGRAM/KILOGRAM, EVERY 6 WEEKS
     Route: 065
  6. RITUXIMAB [Suspect]
     Active Substance: RITUXIMAB
     Indication: Necrotising scleritis
     Dosage: UNK
     Route: 065
  7. RITUXIMAB [Suspect]
     Active Substance: RITUXIMAB
     Indication: Granulomatosis with polyangiitis
  8. TOCILIZUMAB [Suspect]
     Active Substance: TOCILIZUMAB
     Indication: Necrotising scleritis
     Dosage: UNK
     Route: 065
  9. CYCLOPHOSPHAMIDE [Suspect]
     Active Substance: CYCLOPHOSPHAMIDE
     Indication: Necrotising scleritis
     Dosage: UNK
     Route: 065
  10. CYCLOPHOSPHAMIDE [Suspect]
     Active Substance: CYCLOPHOSPHAMIDE
     Indication: Granulomatosis with polyangiitis
     Dosage: UNK
     Route: 065
  11. CYCLOPHOSPHAMIDE [Suspect]
     Active Substance: CYCLOPHOSPHAMIDE
     Indication: Cellulitis orbital
  12. SOLU-MEDROL [Suspect]
     Active Substance: METHYLPREDNISOLONE SODIUM SUCCINATE
     Indication: Necrotising scleritis
     Dosage: UNK
     Route: 065
  13. ACTHAR [Suspect]
     Active Substance: CORTICOTROPIN
     Indication: Necrotising scleritis
     Dosage: UNK (INJECTION GEL)
     Route: 065

REACTIONS (7)
  - Cellulitis orbital [Recovered/Resolved]
  - Sinusitis [Unknown]
  - Pneumonia [Unknown]
  - Condition aggravated [Unknown]
  - Drug ineffective [Unknown]
  - Cellulitis [Unknown]
  - Off label use [Unknown]
